FAERS Safety Report 17650944 (Version 1)
Quarter: 2020Q2

REPORT INFORMATION
  Report Type: Spontaneous
  Country: US (occurrence: US)
  Receive Date: 20200408
  Receipt Date: 20200408
  Transmission Date: 20200713
  Serious: No
  Sender: FDA-Public Use
  Company Number: None

PATIENT

DRUGS (2)
  1. EOVIST [Suspect]
     Active Substance: GADOXETATE DISODIUM
     Dates: start: 20200311, end: 20200408
  2. EOVIST [Concomitant]
     Active Substance: GADOXETATE DISODIUM

REACTIONS (3)
  - Tachypnoea [None]
  - Dyspnoea [None]
  - Panic disorder [None]

NARRATIVE: CASE EVENT DATE: 20200310
